FAERS Safety Report 8618551-2 (Version None)
Quarter: 2012Q3

REPORT INFORMATION
  Report Type: 
  Country: None (occurrence: None)
  Receive Date: 20120814
  Receipt Date: 20120814
  Transmission Date: 20120928
  Serious: Yes (Life-Threatening, Hospitalization, Disabling)
  Sender: FDA-Public Use
  Company Number: None

PATIENT
  Age: 69 Year
  Sex: Male
  Weight: 81.6475 kg

DRUGS (3)
  1. LEVOFLOXACIN [Suspect]
     Indication: DISEASE COMPLICATION
     Dosage: 1 DOSE, DAILY, PO
     Route: 048
     Dates: start: 20120803, end: 20120809
  2. LEVOFLOXACIN [Suspect]
     Indication: CHRONIC OBSTRUCTIVE PULMONARY DISEASE
     Dosage: 1 DOSE, DAILY, PO
     Route: 048
     Dates: start: 20120803, end: 20120809
  3. LEVOFLOXACIN [Concomitant]

REACTIONS (4)
  - HEART RATE DECREASED [None]
  - RENAL FAILURE ACUTE [None]
  - FEELING ABNORMAL [None]
  - DYSPNOEA [None]
